FAERS Safety Report 14803305 (Version 1)
Quarter: 2018Q2

REPORT INFORMATION
  Report Type: Spontaneous
  Country: US (occurrence: US)
  Receive Date: 20180425
  Receipt Date: 20180425
  Transmission Date: 20180711
  Serious: No
  Sender: FDA-Public Use
  Company Number: US-GLENMARK PHARMACEUTICALS-2017GMK029955

PATIENT

DRUGS (2)
  1. IMIQUIMOD. [Suspect]
     Active Substance: IMIQUIMOD
     Indication: EXTERNAL EAR INFLAMMATION
  2. IMIQUIMOD. [Suspect]
     Active Substance: IMIQUIMOD
     Indication: EAR NEOPLASM
     Dosage: UNK, THREE TIMES A WEEK
     Route: 065

REACTIONS (5)
  - Abnormal dreams [Not Recovered/Not Resolved]
  - Sleep disorder [Not Recovered/Not Resolved]
  - Product use issue [Unknown]
  - Diarrhoea [Unknown]
  - Product use in unapproved indication [Unknown]
